FAERS Safety Report 6882320-4 (Version None)
Quarter: 2010Q3

REPORT INFORMATION
  Report Type: 
  Country: None (occurrence: None)
  Receive Date: 20100729
  Receipt Date: 20091028
  Transmission Date: 20110219
  Serious: No
  Sender: FDA-Public Use
  Company Number: US-MYLANLABS-2009S1017514

PATIENT
  Age: 53 Year
  Sex: Female

DRUGS (6)
  1. LEVOTHYROXINE SODIUM [Suspect]
     Indication: HYPOTHYROIDISM
     Route: 048
     Dates: start: 20080101, end: 20090928
  2. LEVOTHYROXINE SODIUM [Suspect]
     Route: 048
     Dates: start: 20091001
  3. LEVOTHYROXINE SODIUM [Suspect]
     Indication: THYROID DISORDER
     Route: 048
     Dates: start: 20090929, end: 20091001
  4. FISH OIL [Concomitant]
  5. ALEVE (CAPLET) [Concomitant]
     Dosage: (2) 220 MG TABLETS TWICE A DAY
  6. M.V.I. [Concomitant]

REACTIONS (3)
  - BLOOD THYROID STIMULATING HORMONE INCREASED [None]
  - DRUG INEFFECTIVE [None]
  - FATIGUE [None]
